FAERS Safety Report 22887765 (Version 5)
Quarter: 2023Q4

REPORT INFORMATION
  Report Type: Report from Study
  Country: US (occurrence: US)
  Receive Date: 20230831
  Receipt Date: 20231006
  Transmission Date: 20240109
  Serious: Yes (Hospitalization, Other)
  Sender: FDA-Public Use
  Company Number: US-TAKEDA-2023TUS084022

PATIENT
  Sex: Male

DRUGS (1)
  1. HUMAN IMMUNOGLOBULIN G\HYALURONIDASE RECOMBINANT HUMAN [Suspect]
     Active Substance: HUMAN IMMUNOGLOBULIN G\HYALURONIDASE (HUMAN RECOMBINANT)
     Indication: Product used for unknown indication
     Dosage: UNK
     Route: 065

REACTIONS (8)
  - Meningitis [Unknown]
  - Insurance issue [Unknown]
  - General physical health deterioration [Unknown]
  - Blood immunoglobulin G decreased [Unknown]
  - Feeling abnormal [Unknown]
  - Impaired quality of life [Unknown]
  - Malaise [Unknown]
  - Product use issue [Unknown]
